FAERS Safety Report 12938684 (Version 17)
Quarter: 2018Q3

REPORT INFORMATION
  Report Type: Spontaneous
  Country: US (occurrence: US)
  Receive Date: 20161115
  Receipt Date: 20180813
  Transmission Date: 20181010
  Serious: Yes (Hospitalization, Other)
  Sender: FDA-Public Use
  Company Number: US-PFIZER INC-2016524557

PATIENT
  Age: 78 Year
  Sex: Female
  Weight: 56.69 kg

DRUGS (9)
  1. IBRANCE [Suspect]
     Active Substance: PALBOCICLIB
     Dosage: 125 MG, CYCLIC (D 1?21 Q 28 DAYS)
     Route: 048
     Dates: start: 20161021
  2. IBRANCE [Suspect]
     Active Substance: PALBOCICLIB
     Dosage: 75 MG, CYCLIC (DAYS 1?21 OF 28 DAYS)
     Route: 048
     Dates: start: 20170813
  3. IBRANCE [Suspect]
     Active Substance: PALBOCICLIB
     Dosage: 125 MG, CYCLIC (DAYS 1?21 Q 28 DAYS)
     Route: 048
  4. IBRANCE [Suspect]
     Active Substance: PALBOCICLIB
     Dosage: 75 MG, CYCLIC (D 1?21 Q 28 DAYS)
     Route: 048
     Dates: start: 20170815
  5. IBRANCE [Suspect]
     Active Substance: PALBOCICLIB
     Dosage: 75 MG, CYCLIC (DAYS 1?21 Q 28 DAYS)
     Route: 048
     Dates: start: 20170815
  6. IBRANCE [Suspect]
     Active Substance: PALBOCICLIB
     Indication: BREAST CANCER METASTATIC
     Dosage: 125 MG, CYCLIC (DAYS 1?21 Q 28 DAYS)
     Route: 048
     Dates: start: 20161027
  7. IBRANCE [Suspect]
     Active Substance: PALBOCICLIB
     Dosage: 125 MG, CYCLIC (DAYS 1?21 Q 28 DAYS)
     Route: 048
  8. IBRANCE [Suspect]
     Active Substance: PALBOCICLIB
     Dosage: 125 MG, CYCLIC (DAYS 1?21 Q 28 DAYS)
     Route: 048
  9. IBRANCE [Suspect]
     Active Substance: PALBOCICLIB
     Dosage: 125 MG, CYCLIC (DAYS 1?21 Q 28 DAYS)
     Route: 048

REACTIONS (24)
  - White blood cell count decreased [Recovering/Resolving]
  - Dyspnoea exertional [Not Recovered/Not Resolved]
  - Dyspnoea [Not Recovered/Not Resolved]
  - Dysgeusia [Unknown]
  - Feeling hot [Unknown]
  - Tumour compression [Unknown]
  - Neuropathy peripheral [Not Recovered/Not Resolved]
  - Hypokinesia [Unknown]
  - Red blood cell count decreased [Recovering/Resolving]
  - Syncope [Unknown]
  - Paraesthesia [Not Recovered/Not Resolved]
  - Fatigue [Not Recovered/Not Resolved]
  - Neuralgia [Unknown]
  - Weight increased [Unknown]
  - Food intolerance [Unknown]
  - Seizure [Unknown]
  - Hypoaesthesia [Not Recovered/Not Resolved]
  - Hypertension [Unknown]
  - Dehydration [Not Recovered/Not Resolved]
  - Dry skin [Unknown]
  - Blood sodium decreased [Unknown]
  - Pruritus generalised [Unknown]
  - Pollakiuria [Unknown]
  - Decreased appetite [Not Recovered/Not Resolved]

NARRATIVE: CASE EVENT DATE: 20170429
